FAERS Safety Report 6355401-1 (Version None)
Quarter: 2009Q3

REPORT INFORMATION
  Report Type: 
  Country: None (occurrence: None)
  Receive Date: 20090914
  Receipt Date: 20090910
  Transmission Date: 20100115
  Serious: Yes (Death, Other)
  Sender: FDA-Public Use
  Company Number: US-AMGEN-US354780

PATIENT
  Sex: Male
  Weight: 89.1 kg

DRUGS (4)
  1. NPLATE [Suspect]
     Indication: IDIOPATHIC THROMBOCYTOPENIC PURPURA
     Route: 065
     Dates: start: 20090611, end: 20090625
  2. CORTICOSTEROIDS [Concomitant]
     Route: 065
  3. IMMUNOGLOBULINS [Concomitant]
     Route: 065
     Dates: start: 20090601, end: 20090601
  4. DEXAMETHASONE [Concomitant]

REACTIONS (2)
  - DEATH [None]
  - DRUG INEFFECTIVE [None]
